FAERS Safety Report 23574868 (Version 1)
Quarter: 2024Q1

REPORT INFORMATION
  Report Type: Spontaneous
  Country: US (occurrence: None)
  Receive Date: 20240227
  Receipt Date: 20240227
  Transmission Date: 20240410
  Serious: Yes (Other)
  Sender: FDA-Public Use
  Company Number: None

PATIENT
  Age: 63 Year
  Sex: Female

DRUGS (1)
  1. LISINOPRIL [Suspect]
     Active Substance: LISINOPRIL
     Indication: Hypertension
     Dosage: FREQUENCY : DAILY;?
     Route: 048
     Dates: start: 20240226, end: 20240226

REACTIONS (5)
  - Paraesthesia oral [None]
  - Paraesthesia [None]
  - Burning sensation [None]
  - Dyspnoea [None]
  - Cyanosis [None]

NARRATIVE: CASE EVENT DATE: 20240226
